FAERS Safety Report 14627501 (Version 2)
Quarter: 2018Q2

REPORT INFORMATION
  Report Type: Spontaneous
  Country: JP (occurrence: JP)
  Receive Date: 20180312
  Receipt Date: 20180419
  Transmission Date: 20180711
  Serious: Yes (Hospitalization)
  Sender: FDA-Public Use
  Company Number: JP-JNJFOC-20180312111

PATIENT
  Age: 58 Year
  Sex: Female

DRUGS (3)
  1. NOVAMIN (PROCHLORPERAZINE) [Suspect]
     Active Substance: PROCHLORPERAZINE
     Indication: NAUSEA
     Route: 048
     Dates: start: 20171023, end: 20171209
  2. LYRICA [Concomitant]
     Active Substance: PREGABALIN
     Indication: PAIN
     Route: 065
  3. TRAMAL [Suspect]
     Active Substance: TRAMADOL
     Indication: PAIN
     Route: 048
     Dates: start: 20171023, end: 20171209

REACTIONS (1)
  - Parkinsonism [Recovered/Resolved]

NARRATIVE: CASE EVENT DATE: 20171209
